FAERS Safety Report 5983296-4 (Version None)
Quarter: 2008Q4

REPORT INFORMATION
  Report Type: 
  Country: None (occurrence: None)
  Receive Date: 20081208
  Receipt Date: 20081204
  Transmission Date: 20090506
  Serious: Yes (Hospitalization)
  Sender: FDA-Public Use
  Company Number: US-BAYER-200813961BCC

PATIENT
  Age: 73 Year
  Sex: Female
  Weight: 108 kg

DRUGS (11)
  1. ALEVE (CAPLET) [Suspect]
     Indication: ARTHRALGIA
     Dosage: UNIT DOSE: 220 MG
     Route: 048
     Dates: start: 20080701, end: 20080930
  2. METFORMIN HCL [Concomitant]
  3. NOVOLIN 70/30 [Concomitant]
     Route: 058
  4. POTASSIUM CHLORIDE [Concomitant]
  5. BUMEX [Concomitant]
  6. COREG [Concomitant]
  7. DETROL LA [Concomitant]
  8. NEXIUM [Concomitant]
  9. AMBIEN [Concomitant]
  10. HYDRALAZINE HCL [Concomitant]
  11. CAPOTEN [Concomitant]

REACTIONS (1)
  - BLOOD PRESSURE INCREASED [None]
